FAERS Safety Report 18435309 (Version 1)
Quarter: 2020Q4

REPORT INFORMATION
  Report Type: Report from Study
  Country: JP (occurrence: JP)
  Receive Date: 20201028
  Receipt Date: 20201028
  Transmission Date: 20210114
  Serious: Yes (Death, Other)
  Sender: FDA-Public Use
  Company Number: JP-SECURA BIO, INC.-2016JP017105

PATIENT

DRUGS (8)
  1. BACTRAMIN [Concomitant]
     Active Substance: SULFAMETHOXAZOLE\TRIMETHOPRIM
     Indication: PROPHYLAXIS
     Dosage: 0.5 DF, QD
     Route: 048
     Dates: end: 20160610
  2. CRAVIT [Concomitant]
     Active Substance: LEVOFLOXACIN
     Indication: PROPHYLAXIS
     Dosage: 250 MG, QD
     Route: 048
     Dates: end: 20160614
  3. FARYDAK [Suspect]
     Active Substance: PANOBINOSTAT
     Indication: PLASMA CELL MYELOMA
     Dosage: 10 MG, QD (3 DOSES PER CYCLE)
     Route: 048
     Dates: start: 20160601
  4. BORTEZOMIB. [Concomitant]
     Active Substance: BORTEZOMIB
     Indication: PLASMA CELL MYELOMA
     Dosage: 1.3 MG/M2, 1/WEEK
     Route: 058
     Dates: start: 20160601
  5. BONALON [Concomitant]
     Active Substance: ALENDRONATE SODIUM
     Indication: PLASMA CELL MYELOMA
     Dosage: 35 MG, UNK
     Route: 048
     Dates: start: 20160601, end: 20160608
  6. JANUVIA [Concomitant]
     Active Substance: SITAGLIPTIN PHOSPHATE
     Indication: DIABETES MELLITUS
     Dosage: 50 MG, UNK
     Route: 048
     Dates: start: 20160601, end: 20160614
  7. ITRIZOLE [Concomitant]
     Active Substance: ITRACONAZOLE
     Indication: PROPHYLAXIS
     Dosage: 100 MG, QD
     Route: 048
     Dates: end: 20160614
  8. DEXAMETHASONE. [Concomitant]
     Active Substance: DEXAMETHASONE
     Indication: PLASMA CELL MYELOMA
     Route: 065
     Dates: start: 20160601

REACTIONS (6)
  - Pyrexia [Fatal]
  - Rales [Fatal]
  - Platelet count decreased [Not Recovered/Not Resolved]
  - C-reactive protein increased [Fatal]
  - Pneumonia [Fatal]
  - Hyperthermia [Fatal]

NARRATIVE: CASE EVENT DATE: 20160606
